FAERS Safety Report 8666843 (Version 2)
Quarter: 2012Q4

REPORT INFORMATION
  Report Type: Report from Study
  Country: US (occurrence: US)
  Receive Date: 20120716
  Receipt Date: 20121204
  Transmission Date: 20130627
  Serious: Yes (Death)
  Sender: FDA-Public Use
  Company Number: US-CELGENEUS-163-21880-12070821

PATIENT
  Age: 61 Year
  Sex: Female

DRUGS (39)
  1. REVLIMID [Suspect]
     Indication: ACUTE MYELOID LEUKEMIA
     Dosage: 50 Milligram
     Route: 048
     Dates: start: 20120601, end: 20120621
  2. VIDAZA [Suspect]
     Indication: ACUTE MYELOID LEUKEMIA
     Dosage: 154 Milligram
     Route: 058
     Dates: start: 20120525, end: 20120531
  3. PLATELETS [Concomitant]
     Indication: DRUG USE FOR UNKNOWN INDICATION
     Dosage: 1 IU (International Unit)
     Route: 041
  4. RED BLOOD CELLS [Concomitant]
     Indication: DRUG USE FOR UNKNOWN INDICATION
     Dosage: 2 IU (International Unit)
     Route: 041
  5. DUCOSATE [Concomitant]
     Indication: DRUG USE FOR UNKNOWN INDICATION
     Dosage: 250 Milligram
     Route: 048
  6. SENNA [Concomitant]
     Indication: DRUG USE FOR UNKNOWN INDICATION
     Route: 065
  7. MIRALAX [Concomitant]
     Indication: DRUG USE FOR UNKNOWN INDICATION
     Dosage: 34 Gram
     Route: 048
  8. LASIX [Concomitant]
     Indication: DRUG USE FOR UNKNOWN INDICATION
     Dosage: 40 Milligram
     Route: 065
  9. COMPAZINE [Concomitant]
     Indication: DRUG USE FOR UNKNOWN INDICATION
     Route: 065
  10. REGLAN [Concomitant]
     Indication: DRUG USE FOR UNKNOWN INDICATION
     Route: 065
  11. ALLOPURINOL [Concomitant]
     Indication: DRUG USE FOR UNKNOWN INDICATION
     Dosage: 300 Milligram
     Route: 048
  12. KCL [Concomitant]
     Indication: DRUG USE FOR UNKNOWN INDICATION
     Route: 065
  13. B12 [Concomitant]
     Indication: DRUG USE FOR UNKNOWN INDICATION
     Route: 065
  14. CALCIUM [Concomitant]
     Indication: DRUG USE FOR UNKNOWN INDICATION
     Route: 065
  15. VITAMIN D [Concomitant]
     Indication: DRUG USE FOR UNKNOWN INDICATION
     Route: 065
  16. INSULIN [Concomitant]
     Indication: DRUG USE FOR UNKNOWN INDICATION
     Dosage: 34 units
     Route: 065
  17. INSULIN [Concomitant]
     Dosage: 20 units
     Route: 065
  18. INSULIN [Concomitant]
     Dosage: 80 IU (International Unit)
     Route: 058
  19. MAGNESIUM CITRATE [Concomitant]
     Indication: DRUG USE FOR UNKNOWN INDICATION
     Dosage: 300 milliliter
     Route: 048
  20. NS BOLUS [Concomitant]
     Indication: DRUG USE FOR UNKNOWN INDICATION
     Dosage: 1000 milliliter
     Route: 041
  21. ALTEPLASE [Concomitant]
     Indication: DRUG USE FOR UNKNOWN INDICATION
     Dosage: 2 Milligram
     Route: 041
  22. VANCOMYCIN [Concomitant]
     Indication: DRUG USE FOR UNKNOWN INDICATION
     Dosage: 750 Milligram
     Route: 041
  23. INSULIN LISPRO [Concomitant]
     Indication: DRUG USE FOR UNKNOWN INDICATION
     Dosage: 15 IU (International Unit)
     Route: 041
  24. INSULIN LISPRO [Concomitant]
     Dosage: 0.01-18 units
     Route: 058
  25. BISACODYL [Concomitant]
     Indication: DRUG USE FOR UNKNOWN INDICATION
     Dosage: 10 Milligram
     Route: 048
  26. MAGNESIUM HYDROXIDE [Concomitant]
     Indication: DRUG USE FOR UNKNOWN INDICATION
     Dosage: 30 milliliter
     Route: 048
  27. METOCLOPRAMIDE [Concomitant]
     Indication: DRUG USE FOR UNKNOWN INDICATION
     Dosage: 10 Milligram
     Route: 041
  28. ONDASETRON [Concomitant]
     Indication: DRUG USE FOR UNKNOWN INDICATION
     Dosage: 4 Milligram
     Route: 041
  29. TRIPLE MIX [Concomitant]
     Indication: DRUG USE FOR UNKNOWN INDICATION
     Dosage: 10 milliliter
  30. DEXAMETHASONE [Concomitant]
     Indication: DRUG USE FOR UNKNOWN INDICATION
     Dosage: 10 Milligram
     Route: 041
  31. ANUSOL [Concomitant]
     Indication: DRUG USE FOR UNKNOWN INDICATION
     Route: 054
  32. MORPHINE [Concomitant]
     Indication: DRUG USE FOR UNKNOWN INDICATION
     Dosage: 1-2mg
     Route: 041
  33. ACETAMINOPHEN [Concomitant]
     Indication: DRUG USE FOR UNKNOWN INDICATION
     Dosage: 650 Milligram
     Route: 048
  34. FILGRASTIM [Concomitant]
     Indication: DRUG USE FOR UNKNOWN INDICATION
     Dosage: 480 Microgram
     Route: 058
  35. GLUTOSE [Concomitant]
     Indication: DRUG USE FOR UNKNOWN INDICATION
     Dosage: 16 Gram
     Route: 048
  36. D50W [Concomitant]
     Indication: DRUG USE FOR UNKNOWN INDICATION
     Dosage: 12.5 Gram
     Route: 041
  37. PANTOPRAZOLE [Concomitant]
     Indication: DRUG USE FOR UNKNOWN INDICATION
     Dosage: 80 Milligram
     Route: 041
  38. ZOSYN [Concomitant]
     Indication: DRUG USE FOR UNKNOWN INDICATION
     Dosage: 3.375 Milligram
     Route: 041
  39. CEFEPIME [Concomitant]
     Indication: HYPOTENSION
     Route: 065

REACTIONS (2)
  - Sepsis [Fatal]
  - Acute myeloid leukaemia [Fatal]
